FAERS Safety Report 7977266-4 (Version None)
Quarter: 2011Q4

REPORT INFORMATION
  Report Type: 
  Country: None (occurrence: None)
  Receive Date: 20111213
  Receipt Date: 20111115
  Transmission Date: 20120403
  Serious: No
  Sender: FDA-Public Use
  Company Number: US-AMGEN-USASP2011040996

PATIENT
  Age: 37 Year
  Sex: Female
  Weight: 72.109 kg

DRUGS (2)
  1. TREXALL [Concomitant]
     Dosage: UNK MG, QWK
     Route: 058
     Dates: start: 20101201
  2. ENBREL [Suspect]
     Indication: RHEUMATOID ARTHRITIS
     Dosage: 50 MG, QWK
     Route: 058
     Dates: start: 20110620, end: 20110810

REACTIONS (4)
  - INJECTION SITE URTICARIA [None]
  - INJECTION SITE HAEMATOMA [None]
  - INJECTION SITE REACTION [None]
  - INJECTION SITE PRURITUS [None]
